FAERS Safety Report 23444085 (Version 1)
Quarter: 2024Q1

REPORT INFORMATION
  Report Type: Spontaneous
  Country: US (occurrence: US)
  Receive Date: 20240125
  Receipt Date: 20240125
  Transmission Date: 20240410
  Serious: No
  Sender: FDA-Public Use
  Company Number: US-SA-SAC20240123000662

PATIENT
  Age: 56 Year
  Sex: Female

DRUGS (1)
  1. AUBAGIO [Suspect]
     Active Substance: TERIFLUNOMIDE
     Indication: Multiple sclerosis
     Dosage: 14 MG, QD
     Route: 048

REACTIONS (6)
  - Amnesia [Recovering/Resolving]
  - Dyslexia [Recovering/Resolving]
  - Balance disorder [Recovering/Resolving]
  - Asthenia [Recovering/Resolving]
  - Stress [Recovering/Resolving]
  - Memory impairment [Recovering/Resolving]
